FAERS Safety Report 8425839-7 (Version None)
Quarter: 2012Q2

REPORT INFORMATION
  Report Type: 
  Country: None (occurrence: None)
  Receive Date: 20120606
  Receipt Date: 20120606
  Transmission Date: 20120825
  Serious: Yes (Other)
  Sender: FDA-Public Use
  Company Number: None

PATIENT
  Age: 76 Year
  Sex: Female
  Weight: 50.8029 kg

DRUGS (1)
  1. MYAMBUTOL [Suspect]
     Indication: MYCOBACTERIUM AVIUM COMPLEX INFECTION
     Dosage: 400MG TAKING TWO TABLETS BY MOUTH DAILY
     Route: 048
     Dates: start: 20110401

REACTIONS (2)
  - CATARACT [None]
  - MACULAR DEGENERATION [None]
